FAERS Safety Report 4343000-2 (Version None)
Quarter: 2004Q2

REPORT INFORMATION
  Report Type: 
  Country: None (occurrence: None)
  Receive Date: 20040416
  Receipt Date: 20040402
  Transmission Date: 20050107
  Serious: Yes (Death)
  Sender: FDA-Public Use
  Company Number: 040412-0000334

PATIENT

DRUGS (1)
  1. METHAMPHETAMINE HCL [Suspect]
     Indication: DRUG ABUSER

REACTIONS (3)
  - DRUG ABUSER [None]
  - DRUG TOXICITY [None]
  - NERVOUS SYSTEM DISORDER [None]
